FAERS Safety Report 20288912 (Version 1)
Quarter: 2022Q1

REPORT INFORMATION
  Report Type: Spontaneous
  Country: US (occurrence: US)
  Receive Date: 20220104
  Receipt Date: 20220104
  Transmission Date: 20220423
  Serious: Yes (Other)
  Sender: FDA-Public Use
  Company Number: US-MLMSERVICE-20211223-3287199-1

PATIENT
  Age: 32 Month
  Sex: Female

DRUGS (7)
  1. ACYCLOVIR [Suspect]
     Active Substance: ACYCLOVIR
     Indication: Antiviral prophylaxis
     Dosage: PROPHYLACTIC ORAL ACYCLOVIR
     Route: 048
  2. ACYCLOVIR [Suspect]
     Active Substance: ACYCLOVIR
     Indication: Evidence based treatment
     Dosage: EMPIRIC ORAL ACYCLOVIR THERAPY
     Route: 048
  3. CEFEPIME [Concomitant]
     Active Substance: CEFEPIME HYDROCHLORIDE
     Indication: Pseudomonas infection
  4. FOSCARNET [Concomitant]
     Active Substance: FOSCARNET
     Indication: Evidence based treatment
     Route: 042
  5. BACITRACIN [Concomitant]
     Active Substance: BACITRACIN
     Indication: Wound treatment
     Route: 061
  6. CEPHALEXIN [Concomitant]
     Active Substance: CEPHALEXIN
     Indication: Staphylococcal infection
  7. MUPIROCIN [Concomitant]
     Active Substance: MUPIROCIN
     Indication: Staphylococcal infection

REACTIONS (1)
  - Therapy non-responder [Unknown]
